FAERS Safety Report 10178388 (Version 1)
Quarter: 2014Q2

REPORT INFORMATION
  Report Type: Spontaneous
  Country: US (occurrence: US)
  Receive Date: 20140519
  Receipt Date: 20140519
  Transmission Date: 20141212
  Serious: Yes (Hospitalization, Other)
  Sender: FDA-Public Use
  Company Number: US-BAYER-2014-067171

PATIENT
  Age: 67 Year
  Sex: Male

DRUGS (7)
  1. CIPRO [Suspect]
     Indication: URINARY TRACT INFECTION
     Dosage: 500 MG, BID
     Dates: start: 2008
  2. CIPRO [Suspect]
     Indication: PROSTATITIS
  3. CREON [AMYLASE,LIPASE,PANCREATIN,PROTEASE] [Suspect]
     Indication: GASTRIC DISORDER
  4. CREON [AMYLASE,LIPASE,PANCREATIN,PROTEASE] [Suspect]
     Indication: DIARRHOEA
  5. CREON [AMYLASE,LIPASE,PANCREATIN,PROTEASE] [Suspect]
     Indication: BILE OUTPUT
  6. CREON [AMYLASE,LIPASE,PANCREATIN,PROTEASE] [Suspect]
     Indication: HAEMORRHAGE
  7. GABAPENTIN [Suspect]
     Indication: NEUROPATHY PERIPHERAL
     Dosage: UNK

REACTIONS (38)
  - Diarrhoea [None]
  - Gastric disorder [None]
  - Bile output abnormal [None]
  - Haemorrhage [None]
  - Mucous stools [None]
  - Toxicity to various agents [None]
  - Bronchitis chronic [None]
  - Pancreatitis chronic [None]
  - Prostatitis [None]
  - Lyme disease [None]
  - Sinusitis [None]
  - Arthritis [None]
  - Irritable bowel syndrome [None]
  - Fibromyalgia [None]
  - Fatigue [None]
  - Tinnitus [None]
  - Spinal column stenosis [None]
  - Psoriasis [None]
  - Vitamin D deficiency [None]
  - Vitamin B complex deficiency [None]
  - Lung hyperinflation [None]
  - Neuropathy peripheral [None]
  - Anger [None]
  - Depression [None]
  - Gait disturbance [None]
  - Dyspnoea [None]
  - Pulmonary embolism [None]
  - Abdominal mass [None]
  - Abdominal pain upper [None]
  - Pain [None]
  - Abdominal rigidity [None]
  - Abdominal distension [None]
  - Rash macular [None]
  - Eye pain [None]
  - Visual acuity reduced [None]
  - Hypertension [None]
  - Blood cholesterol increased [None]
  - Infection [None]
